FAERS Safety Report 6343843-X (Version None)
Quarter: 2009Q3

REPORT INFORMATION
  Report Type: 
  Country: None (occurrence: None)
  Receive Date: 20090908
  Receipt Date: 20090902
  Transmission Date: 20100115
  Serious: Yes (Hospitalization, Other)
  Sender: FDA-Public Use
  Company Number: PHMT2007CA01366

PATIENT
  Sex: Female

DRUGS (1)
  1. SANDOSTATIN LAR [Suspect]
     Indication: PANCREATIC CARCINOMA
     Dosage: 30 MG EVERY 3 WEEKS
     Route: 030
     Dates: start: 20060626

REACTIONS (14)
  - ABASIA [None]
  - ABDOMINAL PAIN UPPER [None]
  - ANXIETY [None]
  - BACK PAIN [None]
  - BIOPSY PANCREAS [None]
  - EATING DISORDER [None]
  - HEADACHE [None]
  - INSOMNIA [None]
  - MAMMOGRAM ABNORMAL [None]
  - PAIN [None]
  - PANCREATIC CARCINOMA RECURRENT [None]
  - PANCREATIC DISORDER [None]
  - PANCREATITIS [None]
  - THROMBOSIS [None]
